FAERS Safety Report 14768063 (Version 1)
Quarter: 2018Q2

REPORT INFORMATION
  Report Type: Spontaneous
  Country: US (occurrence: US)
  Receive Date: 20180417
  Receipt Date: 20180417
  Transmission Date: 20180711
  Serious: No
  Sender: FDA-Public Use
  Company Number: US-BAYER-2018-066643

PATIENT
  Sex: Male

DRUGS (1)
  1. MIRALAX [Suspect]
     Active Substance: POLYETHYLENE GLYCOL 3350
     Indication: COLOSTOMY
     Dosage: UNK
     Route: 065

REACTIONS (4)
  - Off label use [Unknown]
  - Product prescribing issue [Unknown]
  - Extra dose administered [Unknown]
  - Product use in unapproved indication [Unknown]
